FAERS Safety Report 8439342-1 (Version None)
Quarter: 2012Q2

REPORT INFORMATION
  Report Type: 
  Country: None (occurrence: None)
  Receive Date: 20120615
  Receipt Date: 20120612
  Transmission Date: 20120825
  Serious: Yes (Other)
  Sender: FDA-Public Use
  Company Number: PHEH2012US010383

PATIENT
  Sex: Male

DRUGS (6)
  1. DIOVAN HCT [Suspect]
     Indication: HYPERTENSION
     Dosage: (320/25 MG), ONCE A DAY
     Route: 048
  2. COLCRYS [Concomitant]
     Indication: GOUT
     Dosage: 0.6 MG, ONCE A DAY
     Route: 048
  3. LIPITOR [Suspect]
     Dosage: UNK UKN, UNK
  4. ALLOPURINOL [Concomitant]
     Indication: GOUT
     Dosage: 300 MG, ONCE A DAY
     Route: 048
  5. DEXILANT [Concomitant]
     Indication: GASTRIC DISORDER
     Dosage: 60 MG, ONCE A DAY
     Route: 048
  6. CELEBREX [Concomitant]
     Indication: ARTHRITIS
     Dosage: 200 MG, ONCE A DAY
     Route: 048

REACTIONS (5)
  - LIVER DISORDER [None]
  - BLOOD CHOLESTEROL ABNORMAL [None]
  - CARDIAC DISORDER [None]
  - PROSTATE CANCER [None]
  - DRUG INTOLERANCE [None]
